APPROVED DRUG PRODUCT: VANCOLED
Active Ingredient: VANCOMYCIN HYDROCHLORIDE
Strength: EQ 500MG BASE/6ML
Dosage Form/Route: FOR SOLUTION;ORAL
Application: A063321 | Product #003
Applicant: LEDERLE PARENTERALS INC
Approved: Oct 15, 1993 | RLD: No | RS: No | Type: DISCN